FAERS Safety Report 9868018 (Version 3)
Quarter: 2015Q2

REPORT INFORMATION
  Report Type: Report from Study
  Country: FR (occurrence: FR)
  Receive Date: 20140204
  Receipt Date: 20150506
  Transmission Date: 20150821
  Serious: Yes (Hospitalization, Disabling)
  Sender: FDA-Public Use
  Company Number: FR-SANOFI-AVENTIS-2012SA021289

PATIENT
  Age: 50 Year
  Sex: Female
  Weight: 76 kg

DRUGS (3)
  1. TERIFLUNOMIDE [Suspect]
     Active Substance: TERIFLUNOMIDE
     Indication: MULTIPLE SCLEROSIS RELAPSE
     Route: 048
     Dates: start: 20110704
  2. LORAZEPAM. [Concomitant]
     Active Substance: LORAZEPAM
     Indication: INSOMNIA
     Route: 048
     Dates: start: 20110802
  3. SOTALEX [Concomitant]
     Active Substance: SOTALOL
     Indication: HYPERTENSION
     Route: 065
     Dates: start: 2006

REACTIONS (1)
  - Trigeminal neuralgia [Recovered/Resolved]

NARRATIVE: CASE EVENT DATE: 20120130
